FAERS Safety Report 16819042 (Version 1)
Quarter: 2019Q3

REPORT INFORMATION
  Report Type: Spontaneous
  Country: US (occurrence: US)
  Receive Date: 20190917
  Receipt Date: 20190917
  Transmission Date: 20191005
  Serious: Yes (Hospitalization, Other)
  Sender: FDA-Public Use
  Company Number: US-AKRON, INC.-2074539

PATIENT
  Sex: Male

DRUGS (1)
  1. GABAPENTIN ORAL SOLUTION [Suspect]
     Active Substance: GABAPENTIN

REACTIONS (3)
  - Withdrawal syndrome [Recovering/Resolving]
  - Off label use [Unknown]
  - Intentional overdose [Recovering/Resolving]
